FAERS Safety Report 5991399-3 (Version None)
Quarter: 2008Q4

REPORT INFORMATION
  Report Type: 
  Country: None (occurrence: None)
  Receive Date: 20081211
  Receipt Date: 20081203
  Transmission Date: 20090506
  Serious: Yes (Hospitalization)
  Sender: FDA-Public Use
  Company Number: PHHY2008JP29996

PATIENT
  Age: 53 Year
  Sex: Female
  Weight: 32 kg

DRUGS (2)
  1. CYCLOSPORINE [Suspect]
     Indication: INTERSTITIAL LUNG DISEASE
     Dosage: UNK
     Dates: start: 20050101
  2. STEROIDS NOS [Concomitant]
     Dosage: UNK
     Dates: start: 20050101

REACTIONS (13)
  - BUNDLE BRANCH BLOCK RIGHT [None]
  - COUGH [None]
  - CYANOSIS [None]
  - DYSPNOEA [None]
  - ELECTROCARDIOGRAM T WAVE INVERSION [None]
  - FACE OEDEMA [None]
  - INTERSTITIAL LUNG DISEASE [None]
  - PULMONARY ARTERIAL HYPERTENSION [None]
  - PULMONARY ARTERY DILATATION [None]
  - RALES [None]
  - RIGHT VENTRICULAR FAILURE [None]
  - TRICUSPID VALVE INCOMPETENCE [None]
  - VASODILATATION [None]
